FAERS Safety Report 14458705 (Version 3)
Quarter: 2018Q1

REPORT INFORMATION
  Report Type: Spontaneous
  Country: MX (occurrence: MX)
  Receive Date: 20180130
  Receipt Date: 20180223
  Transmission Date: 20180509
  Serious: Yes (Other)
  Sender: FDA-Public Use
  Company Number: MX-PFIZER INC-2018039534

PATIENT
  Age: 68 Year
  Sex: Male

DRUGS (6)
  1. CORDARONE [Suspect]
     Active Substance: AMIODARONE HYDROCHLORIDE
     Indication: ARRHYTHMIA
     Dosage: 0.5 DF, DAILY
     Route: 048
     Dates: start: 1998
  2. SINTROM [Concomitant]
     Active Substance: ACENOCOUMAROL
     Dosage: UNK
     Dates: start: 1998
  3. ASPIRIN PROTECT [Concomitant]
     Active Substance: ASPIRIN
     Dosage: UNK
     Dates: start: 1998
  4. DILATREND [Concomitant]
     Active Substance: CARVEDILOL
     Dosage: UNK
     Dates: start: 1998
  5. DIGOXIN. [Concomitant]
     Active Substance: DIGOXIN
     Dosage: UNK
     Dates: start: 1998
  6. TAFIL [Concomitant]
     Active Substance: ALPRAZOLAM
     Dosage: UNK
     Dates: start: 1998

REACTIONS (8)
  - Painful respiration [Not Recovered/Not Resolved]
  - Weight decreased [Recovered/Resolved]
  - Cardiac failure [Not Recovered/Not Resolved]
  - Glaucoma [Unknown]
  - Diabetes mellitus [Not Recovered/Not Resolved]
  - Hypothyroidism [Not Recovered/Not Resolved]
  - Influenza [Recovered/Resolved]
  - Vertigo [Not Recovered/Not Resolved]

NARRATIVE: CASE EVENT DATE: 2010
